FAERS Safety Report 25017413 (Version 2)
Quarter: 2025Q4

REPORT INFORMATION
  Report Type: Spontaneous
  Country: JP (occurrence: JP)
  Receive Date: 20250227
  Receipt Date: 20251031
  Transmission Date: 20260118
  Serious: Yes (Other)
  Sender: ASTELLAS
  Company Number: JP-ASTELLAS-2025-AER-010338

PATIENT
  Age: 77 Year
  Sex: Male

DRUGS (28)
  1. PADCEV [Suspect]
     Active Substance: ENFORTUMAB VEDOTIN-EJFV
     Indication: Bladder cancer
     Route: 065
  2. PADCEV [Suspect]
     Active Substance: ENFORTUMAB VEDOTIN-EJFV
     Indication: Malignant neoplasm of renal pelvis
  3. AZILSARTAN KAMEDOXOMIL [Concomitant]
     Active Substance: AZILSARTAN KAMEDOXOMIL
     Indication: Product used for unknown indication
     Route: 048
  4. NIFEDIPINE [Concomitant]
     Active Substance: NIFEDIPINE
     Indication: Product used for unknown indication
     Route: 048
  5. ROSUVASTATIN [Concomitant]
     Active Substance: ROSUVASTATIN
     Indication: Product used for unknown indication
     Route: 048
  6. RABEPRAZOLE [Concomitant]
     Active Substance: RABEPRAZOLE
     Indication: Product used for unknown indication
     Route: 048
  7. PEMBROLIZUMAB [Concomitant]
     Active Substance: PEMBROLIZUMAB
     Indication: Bladder cancer
     Route: 065
  8. PEMBROLIZUMAB [Concomitant]
     Active Substance: PEMBROLIZUMAB
     Indication: Malignant neoplasm of renal pelvis
  9. BETAMETHASONE [Concomitant]
     Active Substance: BETAMETHASONE
     Indication: Rash
     Route: 065
  10. FEXOFENADINE [Concomitant]
     Active Substance: FEXOFENADINE HYDROCHLORIDE
     Indication: Rash
     Route: 065
  11. TAZOBACTAMA/PIPERACILLIN [Concomitant]
     Indication: Pyelonephritis
     Route: 065
  12. TAZOBACTAMA/PIPERACILLIN [Concomitant]
     Indication: Enterococcus test positive
     Route: 065
  13. TAZOBACTAMA/PIPERACILLIN [Concomitant]
     Indication: Pleurisy bacterial
  14. PREDNISOLONE [Concomitant]
     Active Substance: PREDNISOLONE
     Indication: Interstitial lung disease
     Route: 065
  15. PREDNISOLONE [Concomitant]
     Active Substance: PREDNISOLONE
     Route: 065
  16. PREDNISOLONE [Concomitant]
     Active Substance: PREDNISOLONE
     Route: 065
  17. MEROPENEM [Concomitant]
     Active Substance: MEROPENEM
     Indication: Pyelonephritis
     Route: 065
  18. MEROPENEM [Concomitant]
     Active Substance: MEROPENEM
     Indication: Enterococcus test positive
  19. MEROPENEM [Concomitant]
     Active Substance: MEROPENEM
     Indication: Pleurisy bacterial
  20. MICAFUNGIN [Concomitant]
     Active Substance: MICAFUNGIN SODIUM
     Indication: Pneumonia fungal
     Route: 065
  21. ST [Concomitant]
     Indication: Pneumonia fungal
     Route: 065
  22. ST [Concomitant]
     Indication: Bronchopulmonary aspergillosis
     Route: 065
  23. ST [Concomitant]
     Route: 065
  24. ST [Concomitant]
     Route: 065
  25. ST [Concomitant]
     Route: 065
  26. VANCOMYCIN [Concomitant]
     Active Substance: VANCOMYCIN
     Indication: Pneumonia fungal
     Route: 065
  27. VORICONAZOLE [Concomitant]
     Active Substance: VORICONAZOLE
     Indication: Bronchopulmonary aspergillosis
     Route: 065
  28. ATOVAQUONE [Concomitant]
     Active Substance: ATOVAQUONE
     Indication: Bronchopulmonary aspergillosis
     Route: 065

REACTIONS (8)
  - Pyelonephritis [Unknown]
  - Pleurisy bacterial [Unknown]
  - Interstitial lung disease [Unknown]
  - Pneumonia fungal [Unknown]
  - Bronchopulmonary aspergillosis [Unknown]
  - Rash [Unknown]
  - Rash [Unknown]
  - Enterococcus test positive [Unknown]
